FAERS Safety Report 5223482-4 (Version None)
Quarter: 2007Q1

REPORT INFORMATION
  Report Type: 
  Country: None (occurrence: None)
  Receive Date: 20070125
  Receipt Date: 20070115
  Transmission Date: 20070707
  Serious: Yes (Hospitalization)
  Sender: FDA-Public Use
  Company Number: 235120

PATIENT
  Age: 83 Year
  Sex: Female
  Weight: 68 kg

DRUGS (2)
  1. RAPTIVA [Suspect]
     Indication: PSORIASIS
     Dosage: 20 UNIT, 1/WEEK, SUBCUTANEOUS
     Route: 058
     Dates: start: 20070111
  2. MEDICATION (GENERIC COMPONENT(S) NOT KNOWN) [Concomitant]

REACTIONS (6)
  - CEREBROVASCULAR ACCIDENT [None]
  - DIZZINESS [None]
  - DYSPNOEA [None]
  - LETHARGY [None]
  - NAUSEA [None]
  - RESPIRATORY DISORDER [None]
